FAERS Safety Report 4402261-1 (Version None)
Quarter: 2004Q3

REPORT INFORMATION
  Report Type: 
  Country: None (occurrence: None)
  Receive Date: 20040720
  Receipt Date: 20040714
  Transmission Date: 20050211
  Serious: Yes (Other)
  Sender: FDA-Public Use
  Company Number: JP-MERCK-0407USA01277

PATIENT
  Age: 81 Year
  Sex: Female

DRUGS (2)
  1. [THERAPY UNSPECIFIED] [Concomitant]
     Route: 065
  2. PEPCID [Suspect]
     Route: 065
     Dates: start: 20011001

REACTIONS (2)
  - RENAL FAILURE ACUTE [None]
  - RENAL FAILURE CHRONIC [None]
